FAERS Safety Report 21248487 (Version 1)
Quarter: 2022Q3

REPORT INFORMATION
  Report Type: Spontaneous
  Country: US (occurrence: None)
  Receive Date: 20220823
  Receipt Date: 20220823
  Transmission Date: 20221027
  Serious: Yes (unspecified)
  Sender: FDA-Public Use
  Company Number: None

PATIENT
  Age: 55 Year
  Weight: 51.75 kg

DRUGS (1)
  1. NAPROXEN SODIUM [Suspect]
     Active Substance: NAPROXEN SODIUM
     Indication: Arthralgia
     Dosage: OTHER QUANTITY : 1 TABLET(S);?
     Route: 048
     Dates: start: 20220816, end: 20220823

REACTIONS (5)
  - Feeling abnormal [None]
  - Lip disorder [None]
  - Oral discomfort [None]
  - Lip swelling [None]
  - Chemical burn [None]

NARRATIVE: CASE EVENT DATE: 20220819
